FAERS Safety Report 9691981 (Version 1)
Quarter: 2013Q4

REPORT INFORMATION
  Report Type: Spontaneous
  Country: US (occurrence: US)
  Receive Date: 20131118
  Receipt Date: 20131118
  Transmission Date: 20140711
  Serious: No
  Sender: FDA-Public Use
  Company Number: US-B.I. PHARMACEUTICALS,INC./RIDGEFIELD-2013-BI-35807BP

PATIENT
  Sex: Female

DRUGS (14)
  1. MOBIC [Suspect]
  2. PREGABALIN [Concomitant]
     Dosage: 75 MG
     Route: 048
  3. HYDROXYZINE [Concomitant]
     Dosage: 25 MG
     Route: 048
  4. CARVEDILOL [Concomitant]
     Dosage: 6.25 MG
     Route: 048
  5. PRAVASTATIN [Concomitant]
     Dosage: 20 MG
     Route: 048
  6. GLUCOSAMINE HCL [Concomitant]
  7. MECLIZINE [Concomitant]
     Dosage: 12.5 MG
     Route: 048
  8. CYCLOBENZAPRINE [Concomitant]
     Dosage: 10 MG
     Route: 048
  9. NORTRIPTYLINE [Concomitant]
     Dosage: 25 MG
     Route: 048
  10. HYDROCODONE ACETAMINOPHEN [Concomitant]
     Dosage: 5.325 MG
     Route: 048
  11. CALCIUM CARBONATE [Concomitant]
     Dosage: 600 MG
     Route: 048
  12. NEXIUM [Concomitant]
     Dosage: 40 MG
     Route: 048
  13. FLUOXETINE [Concomitant]
     Dosage: 20 MG
     Route: 048
  14. LYRICA [Concomitant]
     Dosage: 25 MG

REACTIONS (1)
  - Drug hypersensitivity [Unknown]
